FAERS Safety Report 7723035-X (Version None)
Quarter: 2011Q3

REPORT INFORMATION
  Report Type: 
  Country: None (occurrence: None)
  Receive Date: 20110901
  Receipt Date: 20110822
  Transmission Date: 20111222
  Serious: Yes (Hospitalization, Other)
  Sender: FDA-Public Use
  Company Number: US-ELI_LILLY_AND_COMPANY-US201011002189

PATIENT
  Sex: Male
  Weight: 122 kg

DRUGS (5)
  1. HUMALOG [Suspect]
     Dosage: 40 U AM, 30 U MIDDAY, 40 U PM
     Route: 065
  2. LANTUS [Concomitant]
     Indication: TYPE 2 DIABETES MELLITUS
     Dosage: UNK
     Dates: start: 19840101
  3. HUMALOG [Suspect]
     Indication: TYPE 2 DIABETES MELLITUS
     Dosage: 50 U, OTHER
     Dates: start: 19900101
  4. HUMALOG [Suspect]
     Dosage: 50 U, OTHER
     Dates: start: 19900101
  5. HUMALOG [Suspect]
     Dosage: 40 U AM, 30 U MIDDAY, 40 U PM
     Route: 065

REACTIONS (8)
  - EYE HAEMORRHAGE [None]
  - BLINDNESS [None]
  - VISUAL IMPAIRMENT [None]
  - MEMORY IMPAIRMENT [None]
  - STENT MALFUNCTION [None]
  - RETINOPATHY [None]
  - MYOCARDIAL INFARCTION [None]
  - CATARACT [None]
